FAERS Safety Report 9638978 (Version 2)
Quarter: 2015Q2

REPORT INFORMATION
  Report Type: Report from Study
  Country: JP (occurrence: JP)
  Receive Date: 20131022
  Receipt Date: 20150421
  Transmission Date: 20150821
  Serious: Yes (Death, Other)
  Sender: FDA-Public Use
  Company Number: JP-ROCHE-1289843

PATIENT
  Sex: Male

DRUGS (5)
  1. LASIX [Concomitant]
     Active Substance: FUROSEMIDE
     Route: 048
  2. GLUFAST [Concomitant]
     Active Substance: MITIGLINIDE
     Route: 048
  3. ATELEC [Concomitant]
     Active Substance: CILNIDIPINE
     Route: 048
  4. ALLOPURINOL. [Concomitant]
     Active Substance: ALLOPURINOL
     Route: 048
  5. METHOXY POLYETHYLENE GLYCOL-EPOETIN BETA [Suspect]
     Active Substance: METHOXY POLYETHYLENE GLYCOL-EPOETIN BETA
     Indication: NEPHROGENIC ANAEMIA
     Dosage: MOST RECENT DOSE ON 10/MAY/2013
     Route: 058
     Dates: start: 20120921

REACTIONS (3)
  - Respiratory failure [Fatal]
  - Hypertensive encephalopathy [Unknown]
  - Pneumonia aspiration [Fatal]
